FAERS Safety Report 13361449 (Version 1)
Quarter: 2017Q1

REPORT INFORMATION
  Report Type: Spontaneous
  Country: IT (occurrence: IT)
  Receive Date: 20170323
  Receipt Date: 20170323
  Transmission Date: 20170429
  Serious: Yes (Other)
  Sender: FDA-Public Use
  Company Number: IT-ROCHE-1880367

PATIENT
  Age: 3 Year
  Sex: Male

DRUGS (1)
  1. DIAZEPAM. [Suspect]
     Active Substance: DIAZEPAM
     Indication: EPILEPSY
     Dosage: ADMINISTERED TWICE
     Route: 054

REACTIONS (4)
  - Tachycardia [Unknown]
  - Dystonia [Unknown]
  - Drug ineffective [Unknown]
  - Product measured potency issue [Unknown]
